FAERS Safety Report 22223538 (Version 1)
Quarter: 2023Q2

REPORT INFORMATION
  Report Type: Spontaneous
  Country: US (occurrence: None)
  Receive Date: 20230417
  Receipt Date: 20230417
  Transmission Date: 20230722
  Serious: Yes (unspecified)
  Sender: FDA-Public Use
  Company Number: None

PATIENT
  Age: 31 Year
  Sex: Male
  Weight: 67.5 kg

DRUGS (2)
  1. SUBLOCADE [Suspect]
     Active Substance: BUPRENORPHINE
     Indication: Drug use disorder
     Dosage: FREQUENCY : MONTHLY;?
     Route: 058
     Dates: start: 20221012, end: 20230110
  2. SUBLOCADE [Concomitant]
     Active Substance: BUPRENORPHINE
     Dates: start: 20221012, end: 20230110

REACTIONS (2)
  - Injection site necrosis [None]
  - Withdrawal syndrome [None]

NARRATIVE: CASE EVENT DATE: 20230104
